FAERS Safety Report 10370542 (Version 1)
Quarter: 2014Q3

REPORT INFORMATION
  Report Type: Spontaneous
  Country: TR (occurrence: TR)
  Receive Date: 20140808
  Receipt Date: 20140808
  Transmission Date: 20150326
  Serious: Yes (Other)
  Sender: FDA-Public Use
  Company Number: TR-PFIZER INC-2014216929

PATIENT
  Age: 40 Year
  Sex: Male
  Weight: 45 kg

DRUGS (10)
  1. MORPHINE SULFATE. [Suspect]
     Active Substance: MORPHINE SULFATE
     Dosage: 1 MG (L4-5 SPACE)
     Route: 037
  2. DURAGESIC [Suspect]
     Active Substance: FENTANYL
     Dosage: 150-200 UG
     Route: 062
  3. MORPHINE SULFATE. [Suspect]
     Active Substance: MORPHINE SULFATE
     Indication: EPIDURAL ANALGESIA
     Dosage: 10 MG, UNK
     Route: 008
  4. DURAGESIC [Suspect]
     Active Substance: FENTANYL
     Dosage: 100 UG, PATCHES MONTHLY
     Route: 062
  5. DURAGESIC [Suspect]
     Active Substance: FENTANYL
     Dosage: 100 UG
     Route: 062
  6. DURAGESIC [Suspect]
     Active Substance: FENTANYL
     Dosage: 50 UG, PATCHES MONTHLY
     Route: 062
  7. MORPHINE SULFATE. [Suspect]
     Active Substance: MORPHINE SULFATE
     Dosage: 2 MG, DAILY
     Route: 058
  8. DURAGESIC [Suspect]
     Active Substance: FENTANYL
     Indication: PAIN
     Dosage: 12.5 UG, PATCHES MONTHLY
     Route: 062
  9. DURAGESIC [Suspect]
     Active Substance: FENTANYL
     Dosage: 25 UG, PATCHES MONTHLY
     Route: 062
  10. BUPIVACAINE [Concomitant]
     Active Substance: BUPIVACAINE
     Indication: EPIDURAL ANALGESIA
     Dosage: 0.25 % (5 ML), DAILY
     Route: 008

REACTIONS (1)
  - Hyperaesthesia [Recovering/Resolving]
